FAERS Safety Report 15713255 (Version 1)
Quarter: 2018Q4

REPORT INFORMATION
  Report Type: Spontaneous
  Country: US (occurrence: US)
  Receive Date: 20181129
  Receipt Date: 20181129
  Transmission Date: 20190205
  Serious: Yes (Hospitalization)
  Sender: FDA-Public Use
  Company Number: None

PATIENT
  Age: 75 Year
  Sex: Male
  Weight: 103.87 kg

DRUGS (1)
  1. EPLERENONE. [Suspect]
     Active Substance: EPLERENONE
     Indication: CARDIAC FAILURE CONGESTIVE
     Route: 048
     Dates: start: 20180507

REACTIONS (7)
  - Overdose [None]
  - Hypophagia [None]
  - Decreased appetite [None]
  - Bradycardia [None]
  - Dehydration [None]
  - Hypotension [None]
  - Acute kidney injury [None]

NARRATIVE: CASE EVENT DATE: 20180530
